FAERS Safety Report 5655630-6 (Version None)
Quarter: 2008Q1

REPORT INFORMATION
  Report Type: 
  Country: None (occurrence: None)
  Receive Date: 20080212
  Receipt Date: 20070824
  Transmission Date: 20080703
  Serious: Yes (Other)
  Sender: FDA-Public Use
  Company Number: MC200700583

PATIENT
  Sex: Female

DRUGS (1)
  1. ANGIOMAX [Suspect]
     Indication: TRANSPLANT
     Dates: start: 20070823, end: 20070823

REACTIONS (2)
  - ATRIAL THROMBOSIS [None]
  - THROMBOCYTOPENIA [None]
